FAERS Safety Report 12980941 (Version 1)
Quarter: 2016Q4

REPORT INFORMATION
  Report Type: Spontaneous
  Country: US (occurrence: US)
  Receive Date: 20161128
  Receipt Date: 20161128
  Transmission Date: 20170207
  Serious: No
  Sender: FDA-Public Use
  Company Number: US-TAIHO ONCOLOGY INC-EU-2016-02534

PATIENT
  Age: 54 Year
  Sex: Male

DRUGS (4)
  1. HYDROCHLOROTHIAZIDE/LISINOPRIL DIHYDRATE [Concomitant]
     Dosage: NI
  2. PRAVASTATIN. [Concomitant]
     Active Substance: PRAVASTATIN
     Dosage: NI
  3. LONSURF [Suspect]
     Active Substance: TIPIRACIL HYDROCHLORIDE\TRIFLURIDINE
     Indication: COLON CANCER
     Route: 048
     Dates: start: 201608, end: 2016
  4. LEVEMIR [Concomitant]
     Active Substance: INSULIN DETEMIR
     Dosage: NI

REACTIONS (3)
  - Nausea [Unknown]
  - Abdominal distension [Unknown]
  - Fatigue [Unknown]

NARRATIVE: CASE EVENT DATE: 201608
